FAERS Safety Report 5741819-4 (Version None)
Quarter: 2008Q2

REPORT INFORMATION
  Report Type: 
  Country: None (occurrence: None)
  Receive Date: 20080515
  Receipt Date: 20080515
  Transmission Date: 20081010
  Serious: Yes (Life-Threatening, Hospitalization)
  Sender: FDA-Public Use
  Company Number: None

PATIENT
  Age: 85 Year
  Sex: Female
  Weight: 62 kg

DRUGS (10)
  1. ALLOPURINOL [Suspect]
     Indication: GOUT
     Dates: start: 20080414, end: 20080416
  2. AMLODIPINE [Concomitant]
  3. ARICEPT [Concomitant]
  4. DIOVAN [Concomitant]
  5. NAMENDA [Concomitant]
  6. DITROPAN XL [Concomitant]
  7. ASPIRIN [Concomitant]
  8. CELEXA [Concomitant]
  9. MAALOX [Concomitant]
  10. MEGACE [Concomitant]

REACTIONS (4)
  - DOCUMENTED HYPERSENSITIVITY TO ADMINISTERED DRUG [None]
  - ERYTHEMA MULTIFORME [None]
  - MEDICATION ERROR [None]
  - STEVENS-JOHNSON SYNDROME [None]
